FAERS Safety Report 22131481 (Version 2)
Quarter: 2023Q2

REPORT INFORMATION
  Report Type: Report from Study
  Country: CN (occurrence: None)
  Receive Date: 20230323
  Receipt Date: 20230504
  Transmission Date: 20230721
  Serious: Yes (Hospitalization)
  Sender: FDA-Public Use
  Company Number: CN-Merck Healthcare KGaA-9390337

PATIENT
  Age: 36 Year
  Sex: Female
  Weight: 66 kg

DRUGS (10)
  1. GONAL-F [Suspect]
     Active Substance: FOLLITROPIN
     Indication: Controlled ovarian stimulation
     Dates: start: 20191114
  2. GONAL-F [Suspect]
     Active Substance: FOLLITROPIN
     Dosage: MOST RECENT DOSE ON 24 NOV 2019
  3. LUVERIS [Suspect]
     Active Substance: LUTROPIN ALFA
     Indication: Controlled ovarian stimulation
     Dosage: MOST RECENT DOSE WAS TAKEN ON 24 NOV 2019
     Dates: start: 20191121
  4. TRIPTORELIN ACETATE [Suspect]
     Active Substance: TRIPTORELIN ACETATE
     Indication: Controlled ovarian stimulation
     Dates: start: 20191029
  5. TRIPTORELIN ACETATE [Suspect]
     Active Substance: TRIPTORELIN ACETATE
     Dosage: MOST RECENT DOSE ON 24 NOV 2019
  6. IPRATROPIUM BROMIDE [Concomitant]
     Active Substance: IPRATROPIUM BROMIDE\IPRATROPIUM BROMIDE ANHYDROUS
     Indication: Product used for unknown indication
     Dosage: INHALATION SOLUTION
     Dates: start: 20191128, end: 20191129
  7. OMEPRAZOLE [Concomitant]
     Active Substance: OMEPRAZOLE
     Indication: Product used for unknown indication
     Dosage: 40MG/IVGTT/QD
     Route: 041
     Dates: start: 20191128, end: 20191129
  8. TROPISETRON [Concomitant]
     Active Substance: TROPISETRON
     Indication: Product used for unknown indication
     Dosage: IVGTT
     Route: 041
     Dates: start: 20191128, end: 20191129
  9. VITAMIN C [Concomitant]
     Active Substance: ASCORBIC ACID
     Indication: Product used for unknown indication
     Dosage: IVGTT
     Route: 041
     Dates: start: 20191128, end: 20191204
  10. VITAMIN B6 [Concomitant]
     Active Substance: PYRIDOXINE HYDROCHLORIDE
     Indication: Product used for unknown indication
     Dosage: 0.2/IVGTT/QD
     Route: 041
     Dates: start: 20191128, end: 20191204

REACTIONS (1)
  - Intraductal papilloma of breast [Recovered/Resolved]

NARRATIVE: CASE EVENT DATE: 20191126
